FAERS Safety Report 4267960-3 (Version None)
Quarter: 2004Q1

REPORT INFORMATION
  Report Type: 
  Country: None (occurrence: None)
  Receive Date: 20040108
  Receipt Date: 20030624
  Transmission Date: 20041129
  Serious: Yes (Life-Threatening, Hospitalization)
  Sender: FDA-Public Use
  Company Number: WAES 99011025

PATIENT
  Age: 70 Year
  Sex: Female

DRUGS (5)
  1. AGGRASTAT [Suspect]
     Indication: ANGINA PECTORIS
     Dosage: IX/IV
     Route: 042
  2. AGGRASTAT [Suspect]
     Indication: ANGINA UNSTABLE
     Dosage: IX/IV
     Route: 042
  3. PLAVIX [Concomitant]
  4. ASPIRIN [Concomitant]
  5. HEPARIN [Concomitant]

REACTIONS (1)
  - PULMONARY ALVEOLAR HAEMORRHAGE [None]
